FAERS Safety Report 17755912 (Version 1)
Quarter: 2020Q2

REPORT INFORMATION
  Report Type: Spontaneous
  Country: CN (occurrence: CN)
  Receive Date: 20200507
  Receipt Date: 20200507
  Transmission Date: 20200714
  Serious: Yes (Hospitalization, Other)
  Sender: FDA-Public Use
  Company Number: CN-ROCHE-2593315

PATIENT
  Age: 57 Year
  Sex: Male
  Weight: 42 kg

DRUGS (1)
  1. XELODA [Suspect]
     Active Substance: CAPECITABINE
     Indication: NEOPLASM MALIGNANT
     Dosage: DF=TABLET
     Route: 048
     Dates: start: 20200406, end: 20200417

REACTIONS (10)
  - Nausea [Recovering/Resolving]
  - Vomiting [Unknown]
  - Paralysis [Unknown]
  - Decreased appetite [Recovering/Resolving]
  - Dizziness [Recovering/Resolving]
  - Hypotension [Recovering/Resolving]
  - Fatigue [Recovering/Resolving]
  - Angiopathy [Unknown]
  - Depressed mood [Unknown]
  - Syncope [Unknown]

NARRATIVE: CASE EVENT DATE: 20200414
